FAERS Safety Report 17392657 (Version 4)
Quarter: 2020Q2

REPORT INFORMATION
  Report Type: Report from Study
  Country: US (occurrence: US)
  Receive Date: 20200207
  Receipt Date: 20200406
  Transmission Date: 20200713
  Serious: Yes (Hospitalization)
  Sender: FDA-Public Use
  Company Number: NVSC2020US031537

PATIENT
  Age: 64 Year
  Sex: Female
  Weight: 63.5 kg

DRUGS (1)
  1. TREPROSTINIL. [Suspect]
     Active Substance: TREPROSTINIL
     Indication: PULMONARY ARTERIAL HYPERTENSION
     Dosage: 13 NG/KG/MIN, CONT
     Route: 041
     Dates: start: 20200129

REACTIONS (3)
  - Pneumonia [Unknown]
  - Poor quality sleep [Unknown]
  - Headache [Unknown]

NARRATIVE: CASE EVENT DATE: 202001
